FAERS Safety Report 24066049 (Version 1)
Quarter: 2024Q3

REPORT INFORMATION
  Report Type: Spontaneous
  Country: CN (occurrence: CN)
  Receive Date: 20240709
  Receipt Date: 20240709
  Transmission Date: 20241017
  Serious: Yes (Other)
  Sender: NOVARTIS
  Company Number: CN-002147023-NVSC2024CN140538

PATIENT
  Sex: Female

DRUGS (2)
  1. LETROZOLE [Suspect]
     Active Substance: LETROZOLE
     Indication: Ovulation induction
     Dosage: 2.5-5.0 MG/D, STARTING FROM THE 3RD TO 8TH DAY
     Route: 065
  2. CLOMIPHENE [Suspect]
     Active Substance: CLOMIPHENE
     Indication: Ovulation induction
     Dosage: 50-100 MG/D, STARTING FROM THE 3RD TO 8TH DAY
     Route: 065

REACTIONS (3)
  - Abortion [Unknown]
  - Maternal exposure before pregnancy [Unknown]
  - Product use in unapproved indication [Unknown]
